FAERS Safety Report 5885848-9 (Version None)
Quarter: 2008Q3

REPORT INFORMATION
  Report Type: 
  Country: None (occurrence: None)
  Receive Date: 20080917
  Receipt Date: 20080904
  Transmission Date: 20090109
  Serious: Yes (Hospitalization)
  Sender: FDA-Public Use
  Company Number: JP-JNJFOC-20080800604

PATIENT
  Sex: Female

DRUGS (2)
  1. TARIVID [Suspect]
     Indication: CYSTITIS
     Route: 048
  2. TARIVID [Suspect]
     Indication: CHLAMYDIAL CERVICITIS
     Dosage: AT AROUND 09:30, THE PATIENT HAD TAKEN TARIVID.
     Route: 048

REACTIONS (1)
  - ANAPHYLACTOID REACTION [None]
